FAERS Safety Report 5869037-X (Version None)
Quarter: 2008Q3

REPORT INFORMATION
  Report Type: 
  Country: None (occurrence: None)
  Receive Date: 20080903
  Receipt Date: 20080827
  Transmission Date: 20090109
  Serious: Yes (Other)
  Sender: FDA-Public Use
  Company Number: B0361216A

PATIENT
  Sex: Female

DRUGS (10)
  1. PAROXETINE HCL [Suspect]
     Indication: DEPRESSION
     Dates: start: 20001201, end: 20040101
  2. DIANETTE [Concomitant]
  3. THYROXINE [Concomitant]
     Dates: start: 20020701
  4. MARVELON [Concomitant]
     Dates: start: 20020101
  5. ISOTRETINOIN [Concomitant]
     Dates: start: 20030501
  6. FLUOXETINE [Concomitant]
     Dates: start: 20050201, end: 20051101
  7. LAMOTRIGINE [Concomitant]
     Dates: start: 20060201
  8. CITALOPRAM HYDROBROMIDE [Concomitant]
     Dates: start: 20051101
  9. QUETIAPINE [Concomitant]
     Dates: start: 20070401
  10. LITHIUM [Concomitant]
     Dates: start: 20080101

REACTIONS (11)
  - DEPRESSED MOOD [None]
  - DEPRESSION [None]
  - INTENTIONAL SELF-INJURY [None]
  - NAUSEA [None]
  - PARAESTHESIA [None]
  - PSYCHOTIC BEHAVIOUR [None]
  - SUICIDAL IDEATION [None]
  - TEARFULNESS [None]
  - THINKING ABNORMAL [None]
  - VISION BLURRED [None]
  - WITHDRAWAL SYNDROME [None]
